FAERS Safety Report 5792214-3 (Version None)
Quarter: 2008Q2

REPORT INFORMATION
  Report Type: 
  Country: None (occurrence: None)
  Receive Date: 20080626
  Receipt Date: 20080602
  Transmission Date: 20081010
  Serious: No
  Sender: FDA-Public Use
  Company Number: US-BOEHRINGER INGELHEIM GMBH, GERMANY-2008-BP-08554BP

PATIENT
  Sex: Female

DRUGS (7)
  1. SPIRIVA [Suspect]
     Indication: CHRONIC OBSTRUCTIVE PULMONARY DISEASE
     Route: 055
     Dates: start: 20070101
  2. ADVAIR DISKUS 100/50 [Suspect]
     Indication: CHRONIC OBSTRUCTIVE PULMONARY DISEASE
     Dates: start: 20070101
  3. PROVENTIL [Suspect]
  4. XOPINEX [Suspect]
  5. NASONEX [Suspect]
  6. ZYRTEC-D 12 HOUR [Suspect]
  7. OXYGEN [Suspect]

REACTIONS (9)
  - CHEST PAIN [None]
  - DECREASED APPETITE [None]
  - DYSPHONIA [None]
  - EYELID OEDEMA [None]
  - FATIGUE [None]
  - NERVOUSNESS [None]
  - OEDEMA PERIPHERAL [None]
  - SINUSITIS [None]
  - TACHYCARDIA [None]
